FAERS Safety Report 11265967 (Version 1)
Quarter: 2015Q3

REPORT INFORMATION
  Report Type: Spontaneous
  Country: IL (occurrence: IL)
  Receive Date: 20150713
  Receipt Date: 20150713
  Transmission Date: 20151125
  Serious: Yes (Hospitalization)
  Sender: FDA-Public Use
  Company Number: IL-SA-2015SA098805

PATIENT
  Age: 72 Year
  Sex: Male

DRUGS (1)
  1. RENVELA [Suspect]
     Active Substance: SEVELAMER CARBONATE
     Indication: CHRONIC KIDNEY DISEASE
     Route: 048

REACTIONS (1)
  - Cardiac disorder [Not Recovered/Not Resolved]

NARRATIVE: CASE EVENT DATE: 20150628
